FAERS Safety Report 6837713-8 (Version None)
Quarter: 2010Q3

REPORT INFORMATION
  Report Type: 
  Country: None (occurrence: None)
  Receive Date: 20100713
  Receipt Date: 20070522
  Transmission Date: 20110219
  Serious: No
  Sender: FDA-Public Use
  Company Number: US-PFIZER INC-2007041237

PATIENT
  Sex: Female
  Weight: 53.636 kg

DRUGS (6)
  1. CHANTIX [Suspect]
     Indication: SMOKING CESSATION THERAPY
     Dates: start: 20070516
  2. HERBAL PREPARATION [Concomitant]
  3. EPHEDRA [Concomitant]
  4. XANAX [Concomitant]
  5. LAXATIVES [Concomitant]
  6. PRILOSEC [Concomitant]

REACTIONS (4)
  - DYSPEPSIA [None]
  - INCREASED APPETITE [None]
  - TOBACCO USER [None]
  - VOMITING [None]
